FAERS Safety Report 5866743-8 (Version None)
Quarter: 2008Q3

REPORT INFORMATION
  Report Type: 
  Country: None (occurrence: None)
  Receive Date: 20080828
  Receipt Date: 20080828
  Transmission Date: 20090109
  Serious: Yes (Other)
  Sender: FDA-Public Use
  Company Number: None

PATIENT
  Sex: Female
  Weight: 60.9 kg

DRUGS (1)
  1. HALDOL [Suspect]
     Dosage: 12.5MG
     Dates: start: 20080701, end: 20080710

REACTIONS (4)
  - AKATHISIA [None]
  - DROOLING [None]
  - EXTRAPYRAMIDAL DISORDER [None]
  - VISUAL ACUITY REDUCED [None]
